FAERS Safety Report 9184646 (Version 4)
Quarter: 2013Q2

REPORT INFORMATION
  Report Type: Report from Study
  Country: US (occurrence: US)
  Receive Date: 20130324
  Receipt Date: 20130524
  Transmission Date: 20140414
  Serious: Yes (Hospitalization, Disabling)
  Sender: FDA-Public Use
  Company Number: US-ACTELION-A-US2013-80740

PATIENT
  Age: 69 Year
  Sex: Female

DRUGS (2)
  1. VELETRI [Suspect]
     Indication: PULMONARY ARTERIAL HYPERTENSION
     Dosage: 17.5 NG/KG, PER MIN
     Route: 042
  2. VELETRI [Suspect]
     Dosage: 18 NG/KG, PER MIN
     Route: 042

REACTIONS (6)
  - Neuropathy peripheral [Recovered/Resolved with Sequelae]
  - Neuralgia [Recovered/Resolved with Sequelae]
  - Blood potassium decreased [Recovering/Resolving]
  - Dehydration [Recovering/Resolving]
  - Mobility decreased [Unknown]
  - Asthenia [Unknown]
